FAERS Safety Report 4355330-9 (Version None)
Quarter: 2004Q2

REPORT INFORMATION
  Report Type: 
  Country: None (occurrence: None)
  Receive Date: 20040505
  Receipt Date: 20040423
  Transmission Date: 20050107
  Serious: Yes (Hospitalization)
  Sender: FDA-Public Use
  Company Number: BE-JNJFOC-20040405454

PATIENT
  Age: 79 Year
  Sex: Female

DRUGS (2)
  1. PREPULSID (CISAPRIDE) TABLETS [Suspect]
     Indication: IMPAIRED GASTRIC EMPTYING
     Dosage: SEE IMAGE
     Dates: start: 19960101, end: 20020101
  2. PREPULSID (CISAPRIDE) TABLETS [Suspect]
     Indication: IMPAIRED GASTRIC EMPTYING
     Dosage: SEE IMAGE
     Dates: start: 20030422

REACTIONS (1)
  - AGGRESSION [None]
